FAERS Safety Report 6356752-7 (Version None)
Quarter: 2009Q3

REPORT INFORMATION
  Report Type: 
  Country: None (occurrence: None)
  Receive Date: 20090915
  Receipt Date: 20090910
  Transmission Date: 20100115
  Serious: Yes (Death)
  Sender: FDA-Public Use
  Company Number: US-BRISTOL-MYERS SQUIBB COMPANY-14776645

PATIENT
  Sex: Female

DRUGS (2)
  1. ABILIFY [Suspect]
     Route: 030
  2. HALDOL [Suspect]
     Dosage: INJECTION

REACTIONS (1)
  - DEATH [None]
